FAERS Safety Report 21423153 (Version 2)
Quarter: 2022Q4

REPORT INFORMATION
  Report Type: Spontaneous
  Country: DK (occurrence: DK)
  Receive Date: 20221007
  Receipt Date: 20221018
  Transmission Date: 20230113
  Serious: Yes (Other)
  Sender: FDA-Public Use
  Company Number: DK-OTSUKA-2022_047331

PATIENT
  Age: 33 Year
  Sex: Male

DRUGS (8)
  1. ABILIFY MAINTENA [Suspect]
     Active Substance: ARIPIPRAZOLE
     Indication: Psychotic disorder
     Dosage: DOSAGE: UNKNOWN. STRENGTH: 400 MG
     Route: 030
     Dates: start: 201911, end: 202012
  2. ABILIFY MAINTENA [Suspect]
     Active Substance: ARIPIPRAZOLE
     Dosage: 400 MG 4 WK,START DATE IN 2018 OR 2019. STRENGTH: 400 MG
     Route: 065
     Dates: end: 201908
  3. ABILIFY [Suspect]
     Active Substance: ARIPIPRAZOLE
     Indication: Psychotic disorder
     Dosage: SLOW GRADUAL DECREASE IN DOSE. IN NOV2019 DOSE
     Route: 065
     Dates: start: 201908, end: 201911
  4. ABILIFY [Suspect]
     Active Substance: ARIPIPRAZOLE
     Dosage: STOP DATE IN 2018 OR 2019. STRENGTH: UNKNOWN
     Route: 065
     Dates: start: 201808
  5. ZYPREXA [Suspect]
     Active Substance: OLANZAPINE
     Indication: Psychotic disorder
     Dosage: STOP DATE SUMMER 2017. STRENGTH: UNKNOWN
     Route: 065
     Dates: start: 2016, end: 2017
  6. ZYPREXA [Suspect]
     Active Substance: OLANZAPINE
     Dosage: START DATE SUMMER 2017. STRENGTH: UNKNOWN
     Route: 065
     Dates: start: 2017, end: 2017
  7. ZUCLOPENTHIXOL [Suspect]
     Active Substance: ZUCLOPENTHIXOL
     Indication: Psychotic disorder
     Dosage: DOSAGE: UNKNOWN. STRENGTH: UNKNOWN
     Route: 065
     Dates: start: 201711, end: 201808
  8. ZUCLOPENTHIXOL [Suspect]
     Active Substance: ZUCLOPENTHIXOL
     Dosage: STRENGTH: UNKNOWN
     Route: 065
     Dates: start: 2017, end: 201711

REACTIONS (11)
  - Breast disorder male [Unknown]
  - Bone marrow disorder [Unknown]
  - Abdominal distension [Unknown]
  - Arrhythmia [Unknown]
  - Drooling [Unknown]
  - Muscle tightness [Unknown]
  - Tremor [Unknown]
  - Restlessness [Unknown]
  - Urinary retention [Unknown]
  - Dyskinesia [Unknown]
  - Product use in unapproved indication [Unknown]
